FAERS Safety Report 23484238 (Version 3)
Quarter: 2024Q1

REPORT INFORMATION
  Report Type: Report from Study
  Country: US (occurrence: US)
  Receive Date: 20240206
  Receipt Date: 20240323
  Transmission Date: 20240410
  Serious: Yes (Hospitalization, Other)
  Sender: FDA-Public Use
  Company Number: US-ABBVIE-5616978

PATIENT
  Age: 60 Year
  Sex: Female
  Weight: 116.5 kg

DRUGS (18)
  1. RINVOQ [Suspect]
     Active Substance: UPADACITINIB
     Indication: Rheumatoid arthritis
     Dosage: FORM STRENGTH: 15 MILLIGRAM?AT BEDTIME
     Route: 048
     Dates: start: 20230308, end: 20240105
  2. GLUCOPHAGE [Concomitant]
     Active Substance: METFORMIN HYDROCHLORIDE
     Indication: Product used for unknown indication
     Dosage: FORM STRENGTH: 500 MILLIGRAM
     Route: 048
  3. MEDROL [Concomitant]
     Active Substance: METHYLPREDNISOLONE
     Indication: Product used for unknown indication
     Dosage: 21 TABLETS, ORAL, TAKE AS DIRECTED, FOLLOW PACKAGE?DIRECTIONS
     Route: 048
  4. METHOTREXATE [Concomitant]
     Active Substance: METHOTREXATE
     Indication: Product used for unknown indication
     Dosage: FORM STRENGTH: 25 MILLIGRAM/MILLILITERS
  5. DIOVAN HCT [Concomitant]
     Active Substance: HYDROCHLOROTHIAZIDE\VALSARTAN
     Indication: Product used for unknown indication
     Dosage: 160-25 MG PER TABLET
     Route: 048
  6. CYANOCOBALAMIN [Concomitant]
     Active Substance: CYANOCOBALAMIN
     Indication: Product used for unknown indication
     Dosage: FORM STRENGTH: 1000 MICROGRAM
     Route: 030
  7. XARELTO [Concomitant]
     Active Substance: RIVAROXABAN
     Indication: Product used for unknown indication
  8. ASPIRIN [Concomitant]
     Active Substance: ASPIRIN
     Indication: Product used for unknown indication
     Dosage: FORM STRENGTH: 81 MILLIGRAM
     Route: 048
  9. ESTRACE [Concomitant]
     Active Substance: ESTRADIOL
     Indication: Product used for unknown indication
     Dosage: FORM STRENGTH: 2 MILLIGRAM
     Route: 048
  10. ULTRAM [Concomitant]
     Active Substance: TRAMADOL HYDROCHLORIDE
     Indication: Product used for unknown indication
     Dosage: TIME INTERVAL: 0.33333333 DAYS: FORM STRENGTH: 50 MILLIGRAM
     Route: 048
  11. ELAVIL [Concomitant]
     Active Substance: AMITRIPTYLINE HYDROCHLORIDE
     Indication: Product used for unknown indication
     Dosage: AT BEDTIME?FORM STRENGTH: 25 MILLIGRAM
     Route: 048
  12. SYNTHROID [Concomitant]
     Active Substance: LEVOTHYROXINE SODIUM
     Indication: Product used for unknown indication
     Dosage: TAKE 1.5 TABLET (75 MCG) EVERY MIW;F, AND TAKE 1 TABLET (50 MCQ) EVERY DAY?FORM STRENGTH: 50 MICR...
     Route: 048
  13. FOLVITE [Concomitant]
     Active Substance: FOLIC ACID
     Indication: Product used for unknown indication
     Dosage: FORM STRENGTH: 2 MILLIGRAM
     Route: 048
  14. CRESTOR [Concomitant]
     Active Substance: ROSUVASTATIN CALCIUM
     Indication: Product used for unknown indication
     Dosage: FORM STRENGTH: 40 MILLIGRAM
     Route: 048
  15. ALDACTONE [Concomitant]
     Active Substance: SPIRONOLACTONE
     Indication: Product used for unknown indication
     Route: 048
  16. PERCOCET [Concomitant]
     Active Substance: ACETAMINOPHEN\OXYCODONE HYDROCHLORIDE
     Indication: Product used for unknown indication
     Dosage: 5-325 MCG
     Route: 048
  17. ERGOCALCIFEROL [Concomitant]
     Active Substance: ERGOCALCIFEROL
     Indication: Product used for unknown indication
     Dosage: FORM STRENGTH: 50000 UNIT
     Route: 048
  18. PROTONIX [Concomitant]
     Active Substance: PANTOPRAZOLE SODIUM
     Indication: Product used for unknown indication
     Dosage: BEFORE BREAKFAST
     Route: 048

REACTIONS (13)
  - Pulmonary thrombosis [Recovering/Resolving]
  - COVID-19 [Recovered/Resolved]
  - Thrombosis [Recovering/Resolving]
  - Pleuritic pain [Unknown]
  - Acute myocardial infarction [Recovered/Resolved]
  - Pain in extremity [Unknown]
  - Tachycardia [Unknown]
  - Pain [Unknown]
  - Pulmonary embolism [Unknown]
  - Atelectasis [Unknown]
  - Pulmonary infarction [Unknown]
  - Deep vein thrombosis [Unknown]
  - Peripheral swelling [Unknown]

NARRATIVE: CASE EVENT DATE: 20231120
